FAERS Safety Report 8090321-6 (Version None)
Quarter: 2012Q1

REPORT INFORMATION
  Report Type: 
  Country: None (occurrence: None)
  Receive Date: 20120129
  Receipt Date: 20111110
  Transmission Date: 20120608
  Serious: No
  Sender: FDA-Public Use
  Company Number: US-ABBOTT-11P-163-0873655-00

PATIENT
  Age: 37 Year
  Sex: Female

DRUGS (3)
  1. HUMIRA [Suspect]
     Indication: CROHN'S DISEASE
     Dosage: LOADING DOSE
     Dates: start: 20111110
  2. PREDNISONE TAB [Concomitant]
     Indication: INFLAMMATION
  3. APRISO [Concomitant]
     Indication: CROHN'S DISEASE

REACTIONS (2)
  - VAGINAL HAEMORRHAGE [None]
  - MENSTRUAL DISORDER [None]
